FAERS Safety Report 4569793-7 (Version None)
Quarter: 2005Q1

REPORT INFORMATION
  Report Type: 
  Country: None (occurrence: None)
  Receive Date: 20050118
  Receipt Date: 20040721
  Transmission Date: 20050727
  Serious: Yes (Other)
  Sender: FDA-Public Use
  Company Number: HQWYE369422JUL04

PATIENT
  Sex: Female

DRUGS (7)
  1. PREMPRO [Suspect]
  2. CLIMARA [Suspect]
  3. ESTRACE [Suspect]
  4. ESTROGENS (ESTROGENS,  ) [Suspect]
  5. MEDROXYPROGESTERONE ACETATE [Suspect]
  6. PREMARIN [Suspect]
  7. PROVERA [Suspect]

REACTIONS (1)
  - BREAST CANCER [None]
